FAERS Safety Report 8202737-5 (Version None)
Quarter: 2012Q1

REPORT INFORMATION
  Report Type: 
  Country: None (occurrence: None)
  Receive Date: 20120312
  Receipt Date: 20120306
  Transmission Date: 20120608
  Serious: Yes (Other)
  Sender: FDA-Public Use
  Company Number: BR-PFIZER INC-2012059792

PATIENT
  Age: 70 Year
  Sex: Female
  Weight: 80 kg

DRUGS (5)
  1. ABLOCK PLUS [Concomitant]
     Indication: HYPERTENSION
     Dosage: ATENOLOL/ HYDROCHLOROTHIAZIDE 50/12.5, UNK
  2. LIPITOR [Suspect]
     Indication: BLOOD CHOLESTEROL
     Dosage: 20 MG (ONE TABLET), 1X/DAY
     Route: 048
     Dates: start: 20100101, end: 20120101
  3. INSULIN [Concomitant]
     Indication: DIABETES MELLITUS
  4. LOSARTAN POTASSIUM [Concomitant]
     Indication: HYPERTENSION
  5. LEUCOGEN [Concomitant]
     Indication: IMMUNODEFICIENCY
     Dosage: UNK
     Dates: start: 20110101

REACTIONS (5)
  - MEMORY IMPAIRMENT [None]
  - ATROPHY [None]
  - OSTEOARTHRITIS [None]
  - MALAISE [None]
  - CATARACT [None]
